FAERS Safety Report 8291069-5 (Version None)
Quarter: 2012Q2

REPORT INFORMATION
  Report Type: 
  Country: None (occurrence: None)
  Receive Date: 20120417
  Receipt Date: 20110727
  Transmission Date: 20120825
  Serious: No
  Sender: FDA-Public Use
  Company Number: US-ASTRAZENECA-2011SE45321

PATIENT
  Sex: Female

DRUGS (18)
  1. OMEPRAZOLE [Concomitant]
  2. MACRODANTIN [Concomitant]
  3. TESSALON [Concomitant]
  4. CRESTOR [Concomitant]
  5. LANTUS [Concomitant]
  6. LISINOPRIL [Concomitant]
  7. TYLENOL W/ CODEINE [Concomitant]
  8. MIRALAX [Concomitant]
  9. HYDROCHLOROTHIAZIDE [Concomitant]
  10. PHENAZOPYRIDINE HCL TAB [Concomitant]
  11. ACTOPLUS MET [Concomitant]
  12. OXYBUTYNIN [Concomitant]
  13. NEXIUM [Suspect]
     Route: 048
  14. MOBIC [Concomitant]
  15. TRAMADOL HCL [Concomitant]
  16. TRIAMCINOLONE ACETONIDE [Concomitant]
  17. TETRACYCLINE [Concomitant]
  18. PREVACID [Concomitant]

REACTIONS (4)
  - ARTHRALGIA [None]
  - ESSENTIAL HYPERTENSION [None]
  - NEUROPATHY PERIPHERAL [None]
  - TYPE 1 DIABETES MELLITUS [None]
